FAERS Safety Report 5660598-2 (Version None)
Quarter: 2008Q1

REPORT INFORMATION
  Report Type: 
  Country: None (occurrence: None)
  Receive Date: 20080311
  Receipt Date: 20080226
  Transmission Date: 20080703
  Serious: Yes (Other)
  Sender: FDA-Public Use
  Company Number: US-BAYER-200810824BCC

PATIENT
  Age: 53 Year
  Sex: Female
  Weight: 84 kg

DRUGS (4)
  1. BAYER EXTRA STRENGTH (ACETYLSALICYLIC ACID) [Suspect]
     Indication: CARDIAC DISORDER
     Route: 048
  2. BAYER EXTRA STRENGTH PLUS (ACETYLSALICYLIC ACID, BUFFERED WITH CALCIUM [Suspect]
     Indication: CARDIAC DISORDER
     Route: 048
  3. BAYER BACK AND BODY ASPIRIN [Suspect]
     Indication: CARDIAC DISORDER
     Route: 048
  4. BAYER RAPID HEADACHE [Suspect]
     Indication: CARDIAC DISORDER
     Route: 048

REACTIONS (2)
  - BREAST CANCER RECURRENT [None]
  - DRUG INEFFECTIVE [None]
